FAERS Safety Report 17030486 (Version 1)
Quarter: 2019Q4

REPORT INFORMATION
  Report Type: Spontaneous
  Country: US (occurrence: PR)
  Receive Date: 20191114
  Receipt Date: 20191114
  Transmission Date: 20200122
  Serious: Yes (Other)
  Sender: FDA-Public Use
  Company Number: US-PFIZER INC-2019488842

PATIENT
  Age: 64 Year
  Sex: Female

DRUGS (1)
  1. XELJANZ XR [Suspect]
     Active Substance: TOFACITINIB CITRATE
     Indication: RHEUMATOID ARTHRITIS
     Dosage: 11 MG, DAILY
     Dates: start: 20190509

REACTIONS (7)
  - Blindness unilateral [Unknown]
  - Oedema [Unknown]
  - Blood glucose increased [Unknown]
  - Pain in extremity [Unknown]
  - Back pain [Unknown]
  - Haematoma [Unknown]
  - Myalgia [Unknown]
